FAERS Safety Report 21931150 (Version 1)
Quarter: 2023Q1

REPORT INFORMATION
  Report Type: Spontaneous
  Country: FR (occurrence: FR)
  Receive Date: 20230131
  Receipt Date: 20230131
  Transmission Date: 20230417
  Serious: Yes (Hospitalization)
  Sender: FDA-Public Use
  Company Number: None

PATIENT
  Age: 41 Year
  Sex: Male
  Weight: 80 kg

DRUGS (3)
  1. ZOPICLONE [Suspect]
     Active Substance: ZOPICLONE
     Indication: Anxiety
     Dosage: UNK
     Route: 065
     Dates: start: 20220612, end: 20220701
  2. ALPRAZOLAM [Suspect]
     Active Substance: ALPRAZOLAM
     Indication: Anxiety
     Dosage: UNK
     Route: 065
     Dates: start: 20220612, end: 20220701
  3. LAMOTRIGINE [Suspect]
     Active Substance: LAMOTRIGINE
     Indication: Anxiety disorder
     Dosage: 100 MILLIGRAM,QD(50 MG IN MORNING AND IN EVENING)
     Route: 048
     Dates: start: 20220612, end: 20220627

REACTIONS (1)
  - SJS-TEN overlap [Recovered/Resolved]

NARRATIVE: CASE EVENT DATE: 20220628
